FAERS Safety Report 9123028 (Version 1)
Quarter: 2013Q1

REPORT INFORMATION
  Report Type: Spontaneous
  Country: CN (occurrence: CN)
  Receive Date: 20130115
  Receipt Date: 20130115
  Transmission Date: 20140127
  Serious: Yes (Hospitalization)
  Sender: FDA-Public Use
  Company Number: CN-GENZYME-CERZ-1002771

PATIENT
  Age: 49 Year
  Sex: Male
  Weight: 76 kg

DRUGS (3)
  1. CEREZYME [Suspect]
     Indication: GAUCHER^S DISEASE
     Dosage: UNK
     Route: 042
     Dates: start: 200909
  2. CEREZYME [Suspect]
     Dosage: 57.8 U/KG, Q4W
     Route: 042
     Dates: start: 20120928
  3. CEREZYME [Suspect]
     Dosage: 26.3 U/KG, UNK
     Route: 042
     Dates: end: 20121215

REACTIONS (2)
  - Platelet count decreased [Not Recovered/Not Resolved]
  - Splenomegaly [Not Recovered/Not Resolved]
